FAERS Safety Report 20546898 (Version 4)
Quarter: 2022Q2

REPORT INFORMATION
  Report Type: Report from Study
  Country: US (occurrence: US)
  Receive Date: 20220303
  Receipt Date: 20220405
  Transmission Date: 20220721
  Serious: Yes (Hospitalization)
  Sender: FDA-Public Use
  Company Number: US-NOVARTISPH-NVSC2022US046318

PATIENT
  Age: 71 Year
  Sex: Male

DRUGS (1)
  1. ENTRESTO [Suspect]
     Active Substance: SACUBITRIL\VALSARTAN
     Indication: Cardiac failure
     Dosage: 1 DOSAGE FORM, BID (49/51 MG)
     Route: 048
     Dates: start: 20220210

REACTIONS (5)
  - Cerebrovascular accident [Unknown]
  - Weight increased [Recovering/Resolving]
  - Feeling abnormal [Unknown]
  - Gastrointestinal disorder [Unknown]
  - Regurgitation [Unknown]

NARRATIVE: CASE EVENT DATE: 20220201
